FAERS Safety Report 13456346 (Version 22)
Quarter: 2019Q1

REPORT INFORMATION
  Report Type: Spontaneous
  Country: CA (occurrence: CA)
  Receive Date: 20170418
  Receipt Date: 20190117
  Transmission Date: 20190417
  Serious: Yes (Other)
  Sender: FDA-Public Use
  Company Number: CA-PFIZER INC-2017153753

PATIENT
  Age: 44 Year
  Sex: Female
  Weight: 80 kg

DRUGS (22)
  1. DEXILANT [Concomitant]
     Active Substance: DEXLANSOPRAZOLE
     Dosage: UNK
  2. VOLTAREN [Concomitant]
     Active Substance: DICLOFENAC SODIUM
     Dosage: UNK
  3. LYRICA [Suspect]
     Active Substance: PREGABALIN
     Dosage: UNK
  4. ARAVA [Concomitant]
     Active Substance: LEFLUNOMIDE
     Dosage: 20 MG, DAILY
     Dates: start: 201408
  5. HUMIRA [Concomitant]
     Active Substance: ADALIMUMAB
     Dosage: UNK, WEEKLY
     Dates: start: 201501, end: 20170404
  6. INFLECTRA [Suspect]
     Active Substance: INFLIXIMAB-DYYB
     Dosage: 8 MG/KG, EVERY 6 WEEKS
     Route: 042
     Dates: start: 20180823
  7. INFLECTRA [Suspect]
     Active Substance: INFLIXIMAB-DYYB
     Dosage: 5 MG/KG, EVERY 8 WEEKS
     Route: 042
  8. INFLECTRA [Suspect]
     Active Substance: INFLIXIMAB-DYYB
     Dosage: 370 MG, EVERY 6 WEEKS
     Route: 042
     Dates: start: 20180419
  9. INFLECTRA [Suspect]
     Active Substance: INFLIXIMAB-DYYB
     Dosage: 8 MG/KG, EVERY 6 WEEKS
     Route: 042
     Dates: start: 20180823
  10. FLEXERIL [Concomitant]
     Active Substance: CYCLOBENZAPRINE HYDROCHLORIDE
     Dosage: UNK
  11. INFLECTRA [Suspect]
     Active Substance: INFLIXIMAB-DYYB
     Dosage: UNK, EVERY 6 WEEKS
     Route: 042
  12. INFLECTRA [Suspect]
     Active Substance: INFLIXIMAB-DYYB
     Dosage: 370 MG, EVERY 6 WEEKS
     Route: 042
     Dates: start: 20180305, end: 20180419
  13. INFLECTRA [Suspect]
     Active Substance: INFLIXIMAB-DYYB
     Dosage: 8 MG/KG, EVERY 6 WEEKS
     Route: 042
     Dates: start: 20181004
  14. INFLECTRA [Suspect]
     Active Substance: INFLIXIMAB-DYYB
     Dosage: 8 MG/KG, EVERY 6 WEEKS
     Route: 042
     Dates: start: 20181004
  15. CYMBALTA [Concomitant]
     Active Substance: DULOXETINE HYDROCHLORIDE
     Dosage: UNK
  16. INFLECTRA [Suspect]
     Active Substance: INFLIXIMAB-DYYB
     Dosage: 370 MG, EVERY 8 WEEKS
     Route: 042
     Dates: start: 20180119, end: 20180119
  17. PLAQUENIL [Concomitant]
     Active Substance: HYDROXYCHLOROQUINE SULFATE
     Dosage: 300 MG, DAILY
     Dates: start: 201210
  18. INFLECTRA [Suspect]
     Active Substance: INFLIXIMAB-DYYB
     Indication: PSORIATIC ARTHROPATHY
     Dosage: 240 MG, EVERY 0, 2, 6 WEEKS, THEN EVERY 8 WEEKS FOR 12 MONTHS
     Route: 042
     Dates: start: 20170418, end: 20171120
  19. INFLECTRA [Suspect]
     Active Substance: INFLIXIMAB-DYYB
     Dosage: 8 MG/KG, EVERY 6 WEEKS
     Route: 042
     Dates: start: 20180528
  20. INFLECTRA [Suspect]
     Active Substance: INFLIXIMAB-DYYB
     Dosage: 8 MG/KG, EVERY 6 WEEKS
     Route: 042
     Dates: start: 20181113
  21. CONCERTA [Concomitant]
     Active Substance: METHYLPHENIDATE HYDROCHLORIDE
     Dosage: UNK
  22. VALTREX [Concomitant]
     Active Substance: VALACYCLOVIR HYDROCHLORIDE
     Dosage: UNK

REACTIONS (26)
  - Pneumonia [Recovering/Resolving]
  - Infusion related reaction [Unknown]
  - Fatigue [Unknown]
  - Musculoskeletal stiffness [Not Recovered/Not Resolved]
  - Product use issue [Unknown]
  - Back pain [Unknown]
  - Pain [Not Recovered/Not Resolved]
  - Product use issue [Unknown]
  - Psoriatic arthropathy [Unknown]
  - Synovitis [Not Recovered/Not Resolved]
  - Skin disorder [Unknown]
  - Rash macular [Unknown]
  - Vascular rupture [Unknown]
  - Skin atrophy [Unknown]
  - Peripheral swelling [Unknown]
  - Condition aggravated [Unknown]
  - Pruritus [Recovered/Resolved]
  - Sluggishness [Not Recovered/Not Resolved]
  - Pruritus [Recovered/Resolved]
  - Hyperaesthesia [Unknown]
  - Paraesthesia [Unknown]
  - Arthralgia [Unknown]
  - Therapeutic response shortened [Not Recovered/Not Resolved]
  - Heart rate irregular [Unknown]
  - Drug effect decreased [Unknown]
  - Weight decreased [Unknown]

NARRATIVE: CASE EVENT DATE: 20170428
